FAERS Safety Report 18415805 (Version 1)
Quarter: 2020Q4

REPORT INFORMATION
  Report Type: Spontaneous
  Country: DE (occurrence: CN)
  Receive Date: 20201022
  Receipt Date: 20201022
  Transmission Date: 20210114
  Serious: Yes (Other)
  Sender: FDA-Public Use
  Company Number: CN-ELI_LILLY_AND_COMPANY-CN202010007859

PATIENT
  Age: 72 Year
  Sex: Female
  Weight: 50 kg

DRUGS (5)
  1. FLUOROURACIL. [Suspect]
     Active Substance: FLUOROURACIL
     Dosage: 1.8 G, UNKNOWN
     Route: 042
     Dates: start: 20200916
  2. ERBITUX [Suspect]
     Active Substance: CETUXIMAB
     Indication: RECTAL CANCER
     Dosage: 700 MG, UNKNOWN
     Route: 041
     Dates: start: 20200916
  3. FLUOROURACIL. [Suspect]
     Active Substance: FLUOROURACIL
     Indication: RECTAL CANCER
     Dosage: 1.8 G, UNKNOWN
     Route: 040
     Dates: start: 20200916
  4. IRINOTECAN HYDROCHLORIDE. [Suspect]
     Active Substance: IRINOTECAN HYDROCHLORIDE
     Indication: RECTAL CANCER
     Dosage: 260 MG, UNKNOWN
     Route: 042
     Dates: start: 20200916
  5. CALCIUM LEVULINATE [Suspect]
     Active Substance: CALCIUM LEVULINATE
     Indication: RECTAL CANCER
     Dosage: 100 MG, UNKNOWN
     Route: 042
     Dates: start: 20200916

REACTIONS (1)
  - Myelosuppression [Recovering/Resolving]

NARRATIVE: CASE EVENT DATE: 20200930
